FAERS Safety Report 24652368 (Version 2)
Quarter: 2024Q4

REPORT INFORMATION
  Report Type: Report from Study
  Country: FR (occurrence: FR)
  Receive Date: 20241122
  Receipt Date: 20241230
  Transmission Date: 20250115
  Serious: No
  Sender: JAZZ
  Company Number: FR-JAZZ PHARMACEUTICALS-2024-FR-021648

PATIENT

DRUGS (1)
  1. EPIDIOLEX [Suspect]
     Active Substance: CANNABIDIOL
     Indication: Lennox-Gastaut syndrome
     Dosage: 4.3 MILLIGRAM/KILOGRAM, DAY
     Route: 048

REACTIONS (3)
  - Delirium [Not Recovered/Not Resolved]
  - Hallucination [Unknown]
  - Delusion [Unknown]

NARRATIVE: CASE EVENT DATE: 20240801
